FAERS Safety Report 6372526-5 (Version None)
Quarter: 2009Q3

REPORT INFORMATION
  Report Type: 
  Country: None (occurrence: None)
  Receive Date: 20090924
  Receipt Date: 20080919
  Transmission Date: 20100115
  Serious: No
  Sender: FDA-Public Use
  Company Number: US-ASTRAZENECA-2008UW19279

PATIENT
  Age: 45 Year
  Sex: Male

DRUGS (7)
  1. SEROQUEL [Suspect]
     Indication: DEPRESSION
     Dosage: 50MG
     Route: 048
  2. PROZAC [Concomitant]
  3. SYMBALTA [Concomitant]
  4. LORAZEPAM [Concomitant]
  5. ZOCOR [Concomitant]
  6. THYROID TAB [Concomitant]
  7. VITAMINS [Concomitant]

REACTIONS (4)
  - DYSPNOEA [None]
  - FEELING DRUNK [None]
  - HALLUCINATION [None]
  - INSOMNIA [None]
